FAERS Safety Report 26150808 (Version 1)
Quarter: 2025Q4

REPORT INFORMATION
  Report Type: Spontaneous
  Country: US (occurrence: None)
  Receive Date: 20251211
  Receipt Date: 20251211
  Transmission Date: 20260118
  Serious: Yes (Hospitalization)
  Sender: FDA-CTU
  Company Number: None

PATIENT
  Age: 98 Year
  Sex: Male
  Weight: 56.7 kg

DRUGS (2)
  1. VYNDAMAX [Suspect]
     Active Substance: TAFAMIDIS
     Indication: Cardiovascular disorder
     Dosage: FREQUENCY : DAILY;
     Route: 048
     Dates: start: 20250820, end: 20251129
  2. VYNDAMAX [Suspect]
     Active Substance: TAFAMIDIS
     Indication: Hereditary ATTR amyloid cardiomyopathy

REACTIONS (4)
  - Fatigue [None]
  - Intestinal obstruction [None]
  - Abdominal hernia [None]
  - Gastrointestinal disorder [None]

NARRATIVE: CASE EVENT DATE: 20251202
